FAERS Safety Report 8505617-0 (Version None)
Quarter: 2012Q3

REPORT INFORMATION
  Report Type: 
  Country: None (occurrence: None)
  Receive Date: 20120712
  Receipt Date: 20120702
  Transmission Date: 20120928
  Serious: Yes (Other)
  Sender: FDA-Public Use
  Company Number: DE-PFIZER INC-2012163981

PATIENT
  Age: 72 Year
  Weight: 68 kg

DRUGS (8)
  1. MIRTAZAPINE [Interacting]
     Indication: DEPRESSION
     Dosage: 45 MG, 1X/DAY
     Route: 065
  2. ETOMIDATE [Concomitant]
     Indication: ANAESTHESIA
     Dosage: 0.2 MG/KG, DAILY
     Route: 065
  3. ONDANSETRON HYDROCHLORIDE [Interacting]
     Indication: VOMITING
     Dosage: 8 MG
  4. ETOMIDATE [Concomitant]
     Dosage: 0.3 MG/KG, DAILY
  5. DOMPERIDONE [Concomitant]
     Indication: NAUSEA
     Dosage: UNK
  6. VENLAFAXINE [Concomitant]
     Indication: DEPRESSION
     Dosage: 75 MG, 1X/DAY
  7. SUXAMETHONIUM CHLORIDE [Concomitant]
     Indication: HYPOTONIA
     Dosage: 1 MG/KG, DAILY
  8. ONDANSETRON HYDROCHLORIDE [Suspect]
     Indication: NAUSEA
     Dosage: 4 MG

REACTIONS (1)
  - DRUG INTERACTION [None]
